FAERS Safety Report 8119490-6 (Version None)
Quarter: 2012Q1

REPORT INFORMATION
  Report Type: 
  Country: None (occurrence: None)
  Receive Date: 20120207
  Receipt Date: 20120127
  Transmission Date: 20120608
  Serious: Yes (Other)
  Sender: FDA-Public Use
  Company Number: PHHY2012GR007132

PATIENT
  Age: 60 Year
  Sex: Male

DRUGS (1)
  1. CERTICAN [Suspect]
     Dosage: UNK

REACTIONS (2)
  - PRURITUS [None]
  - BLOOD PROLACTIN ABNORMAL [None]
